FAERS Safety Report 24363753 (Version 1)
Quarter: 2024Q3

REPORT INFORMATION
  Report Type: Spontaneous
  Country: US (occurrence: US)
  Receive Date: 20240925
  Receipt Date: 20240925
  Transmission Date: 20241016
  Serious: No
  Sender: JOHNSON AND JOHNSON
  Company Number: US-JNJFOC-20240940355

PATIENT
  Sex: Male

DRUGS (1)
  1. MENS ROGAINE EXTRA STRENGTH [Suspect]
     Active Substance: MINOXIDIL
     Indication: Alopecia
     Dosage: PRODUCT TAKING FROM MANY YEARS AND DOSE WAS 1/2 CAP FULL EACH TIME
     Route: 061

REACTIONS (2)
  - Overdose [Unknown]
  - Product packaging issue [Unknown]
